FAERS Safety Report 9696626 (Version 1)
Quarter: 2013Q4

REPORT INFORMATION
  Report Type: Spontaneous
  Country: NL (occurrence: NL)
  Receive Date: 20131119
  Receipt Date: 20131119
  Transmission Date: 20140711
  Serious: Yes (Disabling, Other)
  Sender: FDA-Public Use
  Company Number: NL-PFIZER INC-2013329096

PATIENT
  Age: 60 Year
  Sex: Female
  Weight: 90 kg

DRUGS (6)
  1. SERTRALINE [Suspect]
     Indication: DEPRESSION
     Dosage: 50 MG, 2X/DAY
     Dates: start: 201303, end: 201310
  2. AMITRIPTYLINE [Suspect]
     Dosage: 25 MG, 1 OR 2 DAILY
     Dates: start: 2000
  3. PANTOPRAZOL [Concomitant]
     Dosage: 40 MG, 2X/DAY
     Dates: start: 2000
  4. HYDROCHLOROTHIAZIDE [Concomitant]
     Dosage: 2 DF, 2X/DAY
     Dates: start: 2000
  5. ACETYLSALICYLIC ACID [Concomitant]
     Dosage: 160 MG, 2X/DAY
     Dates: start: 2000
  6. PROPANOLOL [Concomitant]
     Dosage: 2 DF, 2X/DAY
     Dates: start: 2000

REACTIONS (5)
  - Hyperhidrosis [Not Recovered/Not Resolved]
  - Dry eye [Not Recovered/Not Resolved]
  - Dry mouth [Not Recovered/Not Resolved]
  - Visual acuity reduced [Unknown]
  - Retinal disorder [Unknown]
